FAERS Safety Report 7076612-6 (Version None)
Quarter: 2010Q4

REPORT INFORMATION
  Report Type: 
  Country: None (occurrence: None)
  Receive Date: 20101022
  Receipt Date: 20101013
  Transmission Date: 20110411
  Serious: Yes (Other)
  Sender: FDA-Public Use
  Company Number: JPI-P-012582

PATIENT
  Sex: Female

DRUGS (3)
  1. XYREM [Suspect]
     Indication: NARCOLEPSY
     Dosage: (UNKNOWN) (6 GM (3 GM, 2 IN 1 D)) (10 GM (5 GM, 2 IN 1 D)) (6 GM (3 GM, 2 IN 1 D)) (8 GM (4 GM, 2 IN
     Route: 048
     Dates: start: 20050101, end: 20070104
  2. XYREM [Suspect]
     Indication: NARCOLEPSY
     Dosage: (UNKNOWN) (6 GM (3 GM, 2 IN 1 D)) (10 GM (5 GM, 2 IN 1 D)) (6 GM (3 GM, 2 IN 1 D)) (8 GM (4 GM, 2 IN
     Route: 048
     Dates: start: 20030217
  3. XYREM [Suspect]
     Indication: NARCOLEPSY
     Dosage: (UNKNOWN) (6 GM (3 GM, 2 IN 1 D)) (10 GM (5 GM, 2 IN 1 D)) (6 GM (3 GM, 2 IN 1 D)) (8 GM (4 GM, 2 IN
     Route: 048
     Dates: start: 20070111

REACTIONS (4)
  - CARCINOID TUMOUR [None]
  - INCORRECT DOSE ADMINISTERED [None]
  - SERUM SEROTONIN INCREASED [None]
  - VIITH NERVE PARALYSIS [None]
